FAERS Safety Report 7423072-9 (Version None)
Quarter: 2011Q2

REPORT INFORMATION
  Report Type: 
  Country: None (occurrence: None)
  Receive Date: 20110411
  Receipt Date: 20110401
  Transmission Date: 20111010
  Serious: Yes (Other)
  Sender: FDA-Public Use
  Company Number: LEO-2011-00308

PATIENT
  Age: 80 Year
  Sex: Female

DRUGS (1)
  1. TACLONEX [Suspect]
     Indication: PRODUCT USED FOR UNKNOWN INDICATION
     Dosage: TOPICAL
     Route: 061
     Dates: end: 20110315

REACTIONS (1)
  - PEMPHIGUS [None]
